FAERS Safety Report 4301821-6 (Version None)
Quarter: 2004Q1

REPORT INFORMATION
  Report Type: 
  Country: None (occurrence: None)
  Receive Date: 20040219
  Receipt Date: 20040205
  Transmission Date: 20041129
  Serious: Yes (Hospitalization)
  Sender: FDA-Public Use
  Company Number: 2004-DE-00589GD

PATIENT
  Sex: 0

DRUGS (3)
  1. ATROVENT [Suspect]
     Indication: STATUS ASTHMATICUS
     Dosage: 1.2 MG (EVERY 4 HOURS), IH
     Route: 045
  2. ALBUTEROL [Suspect]
     Indication: STATUS ASTHMATICUS
     Dosage: IH
     Route: 045
  3. SOLU-MEDROL [Concomitant]

REACTIONS (3)
  - INCREASED BRONCHIAL SECRETION [None]
  - RESPIRATORY FAILURE [None]
  - THERAPY NON-RESPONDER [None]
